FAERS Safety Report 12198121 (Version 1)
Quarter: 2016Q1

REPORT INFORMATION
  Report Type: Spontaneous
  Country: None (occurrence: None)
  Receive Date: 20160321
  Receipt Date: 20160321
  Transmission Date: 20160526
  Serious: Yes (Hospitalization, Disabling)
  Sender: FDA-Public Use
  Company Number: None

PATIENT
  Age: 40 Year
  Sex: Female
  Weight: 53.52 kg

DRUGS (3)
  1. PREDNISONE. [Concomitant]
     Active Substance: PREDNISONE
  2. CIPROFLOXACIN. [Suspect]
     Active Substance: CIPROFLOXACIN
     Indication: INFECTION
     Route: 048
  3. LOW DOSE NALTREXONE [Concomitant]
     Active Substance: NALTREXONE

REACTIONS (20)
  - Alopecia [None]
  - Skin atrophy [None]
  - Hyperacusis [None]
  - Feeling cold [None]
  - Multiple allergies [None]
  - Unevaluable event [None]
  - Night sweats [None]
  - Fatigue [None]
  - Quality of life decreased [None]
  - Photophobia [None]
  - General physical health deterioration [None]
  - Cognitive disorder [None]
  - Pain [None]
  - Stress [None]
  - Bedridden [None]
  - Hyperhidrosis [None]
  - Headache [None]
  - Dizziness [None]
  - Gastrointestinal disorder [None]
  - Candida infection [None]
